FAERS Safety Report 7408507-X (Version None)
Quarter: 2011Q2

REPORT INFORMATION
  Report Type: 
  Country: None (occurrence: None)
  Receive Date: 20110412
  Receipt Date: 20110214
  Transmission Date: 20111010
  Serious: Yes (Hospitalization, Other)
  Sender: FDA-Public Use
  Company Number: US-BAYER-201027328NA

PATIENT
  Age: 18 Year
  Sex: Female

DRUGS (4)
  1. TYLENOL 1 [Concomitant]
     Dosage: UNK UNK, PRN
  2. YAZ [Suspect]
     Indication: PRODUCT USED FOR UNKNOWN INDICATION
     Dates: end: 20090615
  3. FIORICET [Concomitant]
  4. YASMIN [Suspect]
     Indication: PRODUCT USED FOR UNKNOWN INDICATION
     Dates: end: 20090615

REACTIONS (2)
  - CEREBROVASCULAR ACCIDENT [None]
  - EMBOLIC CEREBRAL INFARCTION [None]
